FAERS Safety Report 6842409-2 (Version None)
Quarter: 2010Q3

REPORT INFORMATION
  Report Type: 
  Country: None (occurrence: None)
  Receive Date: 20100714
  Receipt Date: 20070725
  Transmission Date: 20110219
  Serious: No
  Sender: FDA-Public Use
  Company Number: US-PFIZER INC-2007063448

PATIENT
  Sex: Female
  Weight: 64.09 kg

DRUGS (5)
  1. CHANTIX [Suspect]
     Indication: SMOKING CESSATION THERAPY
     Dates: start: 20070601
  2. METHYLPHENIDATE HCL [Concomitant]
  3. ALPRAZOLAM [Concomitant]
  4. MULTI-VITAMINS [Concomitant]
  5. CALCIUM [Concomitant]

REACTIONS (4)
  - BREATH ODOUR [None]
  - DYSGEUSIA [None]
  - HEADACHE [None]
  - TONSILLAR HYPERTROPHY [None]
